FAERS Safety Report 8363579-3 (Version None)
Quarter: 2012Q2

REPORT INFORMATION
  Report Type: 
  Country: None (occurrence: None)
  Receive Date: 20120516
  Receipt Date: 20120507
  Transmission Date: 20120825
  Serious: Yes (Hospitalization)
  Sender: FDA-Public Use
  Company Number: PHHO2009ES09114

PATIENT
  Sex: Female
  Weight: 73 kg

DRUGS (4)
  1. TACROLIMUS [Suspect]
     Indication: LIVER TRANSPLANT
     Dosage: 2.5 MG, Q12H
     Route: 048
     Dates: start: 20081107
  2. TACROLIMUS [Suspect]
     Dosage: UNK
     Route: 048
     Dates: start: 20090818
  3. EVEROLIMUS [Suspect]
     Indication: LIVER TRANSPLANT
     Dosage: 2.5 MG, Q12H
     Route: 048
     Dates: start: 20081211, end: 20090720
  4. TACROLIMUS [Suspect]
     Dosage: 7 MG / 12 HRS
     Route: 048
     Dates: end: 20090715

REACTIONS (11)
  - PNEUMONIA [None]
  - OXYGEN SATURATION DECREASED [None]
  - PANCYTOPENIA [None]
  - RESPIRATORY TRACT INFECTION [None]
  - PYREXIA [None]
  - TOXICITY TO VARIOUS AGENTS [None]
  - HAEMOTHORAX [None]
  - CANDIDIASIS [None]
  - WHITE BLOOD CELL COUNT DECREASED [None]
  - NASOPHARYNGITIS [None]
  - ANAEMIA [None]
